FAERS Safety Report 15903327 (Version 1)
Quarter: 2019Q1

REPORT INFORMATION
  Report Type: Spontaneous
  Country: JP (occurrence: JP)
  Receive Date: 20190202
  Receipt Date: 20190202
  Transmission Date: 20190417
  Serious: Yes (Other)
  Sender: FDA-Public Use
  Company Number: JP-UCBSA-2016019937

PATIENT
  Age: 75 Year
  Sex: Female

DRUGS (7)
  1. CAPSAICIN. [Concomitant]
     Active Substance: CAPSAICIN
     Indication: SUPPLEMENTATION THERAPY
  2. XYZAL [Suspect]
     Active Substance: LEVOCETIRIZINE DIHYDROCHLORIDE
     Indication: DERMATITIS CONTACT
     Dosage: UNK
     Route: 048
  3. PABRON GOLD [Suspect]
     Active Substance: AMINOPHENAZONE\CAFFEINE\CALCIUM\CHLORPHENIRAMINE\DIHYDROCODEINE\GUAIFENESIN\METAMIZOLE\METHYLEPHEDRINE\RIBOFLAVIN\TAURINE\THIAMINE
     Indication: UPPER RESPIRATORY TRACT INFLAMMATION
  4. VITAMIN E [Concomitant]
     Active Substance: .ALPHA.-TOCOPHEROL
     Indication: PRODUCT USED FOR UNKNOWN INDICATION
  5. CEPHARANTHINE [Concomitant]
     Active Substance: CEPHARANTHINE
     Indication: ALOPECIA AREATA
  6. XYZAL [Suspect]
     Active Substance: LEVOCETIRIZINE DIHYDROCHLORIDE
     Indication: OFF LABEL USE
  7. XYZAL [Suspect]
     Active Substance: LEVOCETIRIZINE DIHYDROCHLORIDE
     Indication: ALOPECIA AREATA
     Dosage: FORMULATION UPDATED AS TABLET
     Route: 048
     Dates: start: 201405, end: 201503

REACTIONS (4)
  - Depressed mood [Unknown]
  - Upper respiratory tract inflammation [Unknown]
  - Alopecia areata [Not Recovered/Not Resolved]
  - Off label use [Unknown]

NARRATIVE: CASE EVENT DATE: 201405
